FAERS Safety Report 4388655-1 (Version None)
Quarter: 2004Q2

REPORT INFORMATION
  Report Type: 
  Country: None (occurrence: None)
  Receive Date: 20040624
  Receipt Date: 20040618
  Transmission Date: 20050107
  Serious: Yes (Life-Threatening)
  Sender: FDA-Public Use
  Company Number: 237479

PATIENT
  Sex: Male
  Weight: 4.6 kg

DRUGS (2)
  1. ACTRAPID PENFILL HM(GE) 3ML (ACTRAPID PENFILL HM (GE) 3ML) [Suspect]
     Indication: DIABETES MELLITUS INSULIN-DEPENDENT
     Dosage: 46 IU, QD, INTRAUTERINE
     Route: 015
     Dates: start: 20031002
  2. PROTAPHANE PENIFL (INSULIN HUMAN) [Concomitant]

REACTIONS (5)
  - CAESAREAN SECTION [None]
  - FOETAL MOVEMENTS DECREASED [None]
  - HYPOGLYCAEMIA NEONATAL [None]
  - MATERNAL DRUGS AFFECTING FOETUS [None]
  - NEONATAL ASPHYXIA [None]
